FAERS Safety Report 10269787 (Version 1)
Quarter: 2014Q2

REPORT INFORMATION
  Report Type: Spontaneous
  Country: US (occurrence: None)
  Receive Date: 20140627
  Receipt Date: 20140627
  Transmission Date: 20141212
  Serious: Yes (Hospitalization)
  Sender: FDA-Public Use
  Company Number: None

PATIENT
  Age: 35 Year
  Sex: Female
  Weight: 65.77 kg

DRUGS (2)
  1. SPRINTEC [Suspect]
     Indication: HAEMORRHAGE
     Dosage: 1
     Route: 048
     Dates: start: 20140604, end: 20140625
  2. SPRINTEC [Suspect]
     Indication: UTERINE LEIOMYOMA
     Dosage: 1
     Route: 048
     Dates: start: 20140604, end: 20140625

REACTIONS (6)
  - Blindness [None]
  - Amenorrhoea [None]
  - Haemorrhage [None]
  - Vision blurred [None]
  - Product quality issue [None]
  - Depressed level of consciousness [None]
